FAERS Safety Report 8722354 (Version 3)
Quarter: 2012Q4

REPORT INFORMATION
  Report Type: Report from Study
  Country: GB (occurrence: GB)
  Receive Date: 20120814
  Receipt Date: 20120830
  Transmission Date: 20130627
  Serious: Yes (Life-Threatening, Hospitalization)
  Sender: FDA-Public Use
  Company Number: GB-ELI_LILLY_AND_COMPANY-GB201208002246

PATIENT
  Age: 53 Year
  Sex: Male

DRUGS (17)
  1. PEMETREXED [Suspect]
     Indication: NON-SMALL CELL LUNG CANCER METASTATIC
     Dosage: 500 mg/m2, UNK
     Route: 042
     Dates: start: 20120726, end: 20120816
  2. TAXOL [Suspect]
     Indication: NON-SMALL CELL LUNG CANCER METASTATIC
     Dosage: 175 mg/m2, UNK
     Route: 042
     Dates: start: 20120726, end: 20120816
  3. FOLIC ACID [Concomitant]
     Indication: VITAMIN SUPPLEMENTATION
     Dosage: 400 ug, UNK
     Dates: start: 20120605
  4. VITAMIN B12 [Concomitant]
     Indication: VITAMIN SUPPLEMENTATION
     Dosage: 1 mg, every nine weeks
     Route: 030
     Dates: start: 20120605
  5. DEXAMETHASONE [Concomitant]
     Dosage: 4 mg, bid
     Route: 048
     Dates: start: 20120725, end: 20120725
  6. DEXAMETHASONE [Concomitant]
     Dosage: 2 mg, tid
     Route: 048
     Dates: start: 20120726, end: 20120726
  7. DEXAMETHASONE [Concomitant]
     Dosage: 2 mg, bid
     Route: 048
     Dates: start: 20120727, end: 20120727
  8. DEXAMETHASONE [Concomitant]
     Dosage: 2 mg, qd
     Route: 048
     Dates: start: 20120728, end: 20120728
  9. RAMIPRIL [Concomitant]
     Indication: HYPERTENSION
     Dosage: UNK
     Dates: start: 2009
  10. AMLODIPINE [Concomitant]
     Indication: HYPERTENSION
     Dosage: UNK
     Dates: start: 2009
  11. ZOMORPH [Concomitant]
     Indication: ANALGESIC THERAPY
     Dosage: 30 mg, bid
     Route: 048
     Dates: start: 201206
  12. TAZOCIN [Concomitant]
     Indication: PYREXIA
     Dosage: 4.5 g, tid
     Route: 042
     Dates: start: 20120731, end: 20120802
  13. OMEPRAZOLE [Concomitant]
     Indication: ANTACID THERAPY
     Dosage: 20 mg, qd
     Route: 048
     Dates: start: 201206
  14. METOCLOPRAMIDE [Concomitant]
     Indication: ANTIEMETIC SUPPORTIVE CARE
     Dosage: 10 mg, qd
     Dates: start: 20120726
  15. ERYTHROMICIN [Concomitant]
     Indication: NEUTROPENIA
     Dosage: 500 mg, bid
     Route: 048
     Dates: start: 20120802, end: 20120807
  16. CLARITHROMYCIN [Concomitant]
     Indication: NEUTROPENIA
     Dosage: 500 mg, bid
     Route: 048
     Dates: start: 20120802, end: 20120807
  17. CLARITHROMYCIN [Concomitant]
     Dosage: 500 mg, bid
     Route: 042
     Dates: start: 20120807, end: 20120817

REACTIONS (2)
  - Pulmonary sepsis [Recovered/Resolved]
  - Renal failure acute [Recovered/Resolved with Sequelae]
